FAERS Safety Report 6063484-1 (Version None)
Quarter: 2009Q1

REPORT INFORMATION
  Report Type: 
  Country: None (occurrence: None)
  Receive Date: 20090203
  Receipt Date: 20090128
  Transmission Date: 20090719
  Serious: No
  Sender: FDA-Public Use
  Company Number: US-B.I. PHARMACEUTICALS,INC./RIDGEFIELD-2009-BP-01206BP

PATIENT
  Sex: Female

DRUGS (6)
  1. SPIRIVA [Suspect]
     Indication: BRONCHITIS
     Dosage: 18MCG
     Route: 055
     Dates: start: 20070901
  2. ALBUTEROL SULATE [Concomitant]
     Indication: BRONCHITIS
     Route: 055
  3. SYNTHROID [Concomitant]
     Indication: HYPOTHYROIDISM
     Dates: start: 19800101
  4. K-DUR [Concomitant]
     Indication: BLOOD POTASSIUM DECREASED
  5. TRILEPTAL [Concomitant]
     Indication: TRAUMATIC BRAIN INJURY
     Dosage: 450MG
     Dates: start: 20000101
  6. OTHER MEDICATION [Concomitant]

REACTIONS (6)
  - BRONCHIAL SECRETION RETENTION [None]
  - CANDIDIASIS [None]
  - CAROTID BRUIT [None]
  - DYSPHONIA [None]
  - DYSPNOEA [None]
  - OEDEMA [None]
